FAERS Safety Report 5033172-9 (Version None)
Quarter: 2006Q2

REPORT INFORMATION
  Report Type: 
  Country: None (occurrence: None)
  Receive Date: 20060620
  Receipt Date: 20060530
  Transmission Date: 20061013
  Serious: Yes (Life-Threatening, Hospitalization)
  Sender: FDA-Public Use
  Company Number: 2006069051

PATIENT
  Age: 76 Year
  Sex: Male

DRUGS (3)
  1. CARDURA [Suspect]
     Indication: BENIGN PROSTATIC HYPERPLASIA
     Dosage: 2 MG (2 MG, 1 IN 1 D), ORAL
     Route: 048
     Dates: start: 20060525
  2. AGAPURIN (PENTOXIFYLLINE) [Concomitant]
  3. DROSUNAL (NAFTIDROFURYL) [Concomitant]

REACTIONS (3)
  - DIABETES MELLITUS [None]
  - FALL [None]
  - TONGUE DISORDER [None]
